FAERS Safety Report 9359404 (Version 1)
Quarter: 2013Q2

REPORT INFORMATION
  Report Type: Spontaneous
  Country: US (occurrence: US)
  Receive Date: 20130620
  Receipt Date: 20130620
  Transmission Date: 20140414
  Serious: Yes (Hospitalization, Other)
  Sender: FDA-Public Use
  Company Number: US-ASTRAZENECA-2013SE42808

PATIENT
  Age: 50 Year
  Sex: Male

DRUGS (2)
  1. BRILINTA [Suspect]
     Indication: ACUTE CORONARY SYNDROME
     Route: 048
     Dates: start: 20130610
  2. ASPIRIN [Suspect]
     Dates: start: 20130610

REACTIONS (1)
  - Thrombosis in device [Unknown]
